FAERS Safety Report 7074135-1 (Version None)
Quarter: 2010Q4

REPORT INFORMATION
  Report Type: 
  Country: None (occurrence: None)
  Receive Date: 20101029
  Receipt Date: 20101019
  Transmission Date: 20110411
  Serious: Yes (Other)
  Sender: FDA-Public Use
  Company Number: US-PFIZER INC-2010133763

PATIENT
  Sex: Female
  Weight: 58.05 kg

DRUGS (10)
  1. LYRICA [Suspect]
     Indication: PAIN
     Dosage: 50 MG, 3X/DAY
     Route: 048
     Dates: start: 20100101
  2. LYRICA [Suspect]
     Dosage: 50 MG 2X DAILY, 75MG DAILY
  3. LYRICA [Suspect]
     Dosage: 50 MG DAILY, 75MG 2X DAILY
  4. LYRICA [Suspect]
     Dosage: 375 MG, 3X/DAY
  5. LYRICA [Suspect]
     Dosage: 75 MG 2XDAY, 100 MG DAILY
  6. LYRICA [Suspect]
     Dosage: 100 MG, 3X/DAY
  7. LYRICA [Suspect]
     Dosage: 100 2X DAY, 150MG DAILY
  8. KLONOPIN [Concomitant]
     Indication: SEDATIVE THERAPY
     Dosage: 0.5 MG, 2X/DAY
  9. TIZANIDINE HYDROCHLORIDE [Concomitant]
     Indication: MYALGIA
     Dosage: 4 MG, 1X/DAY
     Dates: start: 20070101
  10. VITAMIN D [Concomitant]
     Indication: MULTIPLE SCLEROSIS
     Dosage: 1000 IU, 1X/DAY

REACTIONS (7)
  - AGGRESSION [None]
  - AMENORRHOEA [None]
  - FATIGUE [None]
  - GAIT DISTURBANCE [None]
  - MALAISE [None]
  - PAIN [None]
  - POOR QUALITY SLEEP [None]
